FAERS Safety Report 17740893 (Version 3)
Quarter: 2020Q2

REPORT INFORMATION
  Report Type: Report from Study
  Country: US (occurrence: US)
  Receive Date: 20200504
  Receipt Date: 20200512
  Transmission Date: 20200714
  Serious: No
  Sender: FDA-Public Use
  Company Number: NVSC2020US119474

PATIENT
  Age: 59 Year
  Sex: Female

DRUGS (1)
  1. XIIDRA [Suspect]
     Active Substance: LIFITEGRAST
     Indication: DRY EYE
     Dosage: 1 GTT, BID (1DROP EACH EYE)
     Route: 047

REACTIONS (4)
  - Product use complaint [Unknown]
  - Overdose [Unknown]
  - Product dose omission [Unknown]
  - Product prescribing error [Unknown]
